FAERS Safety Report 19251096 (Version 1)
Quarter: 2021Q2

REPORT INFORMATION
  Report Type: Report from Study
  Country: DE (occurrence: DE)
  Receive Date: 20210512
  Receipt Date: 20210512
  Transmission Date: 20210717
  Serious: Yes (Death, Other)
  Sender: FDA-Public Use
  Company Number: DE-PFIZER INC-2021513617

PATIENT
  Age: 62 Year
  Sex: Male

DRUGS (2)
  1. CAMPTO [Suspect]
     Active Substance: IRINOTECAN
     Indication: OESOPHAGEAL SQUAMOUS CELL CARCINOMA
     Dosage: 60 MG/M2, CYCLIC PLANNED ON DAY , 8, 22, 29, 43
  2. CISPLATIN. [Suspect]
     Active Substance: CISPLATIN
     Indication: OESOPHAGEAL SQUAMOUS CELL CARCINOMA
     Dosage: 30 MG/M2, CYCLIC, PLANNED ON DAY 1, 8, 22, 29, 43

REACTIONS (4)
  - Candida pneumonia [Unknown]
  - Neutropenia [Unknown]
  - Sepsis [Unknown]
  - Thrombocytopenia [Unknown]
